FAERS Safety Report 14630733 (Version 1)
Quarter: 2018Q1

REPORT INFORMATION
  Report Type: Spontaneous
  Country: US (occurrence: US)
  Receive Date: 20180313
  Receipt Date: 20180313
  Transmission Date: 20180509
  Serious: No
  Sender: FDA-Public Use
  Company Number: US-MYLANLABS-2018M1016886

PATIENT
  Sex: Female

DRUGS (2)
  1. CLOZAPINE MYLAN [Suspect]
     Active Substance: CLOZAPINE
     Indication: SCHIZOPHRENIA
     Dosage: 5 MG, BID
     Route: 048
  2. CLOZAPINE MYLAN [Suspect]
     Active Substance: CLOZAPINE
     Dosage: 7.5 MG, UNK

REACTIONS (1)
  - Balance disorder [Recovered/Resolved]
